FAERS Safety Report 17467384 (Version 9)
Quarter: 2021Q3

REPORT INFORMATION
  Report Type: Spontaneous
  Country: US (occurrence: US)
  Receive Date: 20200227
  Receipt Date: 20210901
  Transmission Date: 20211014
  Serious: Yes (Other)
  Sender: FDA-Public Use
  Company Number: US-PFIZER INC-2020086717

PATIENT
  Age: 64 Year
  Sex: Female

DRUGS (16)
  1. XELJANZ [Suspect]
     Active Substance: TOFACITINIB CITRATE
     Indication: OSTEOARTHRITIS
  2. METOPROLOL. [Concomitant]
     Active Substance: METOPROLOL
     Dosage: UNK
  3. PLAVIX [Concomitant]
     Active Substance: CLOPIDOGREL BISULFATE
     Dosage: UNK
  4. IBUPROFEN. [Concomitant]
     Active Substance: IBUPROFEN
     Dosage: UNK
  5. INSULIN [Concomitant]
     Active Substance: INSULIN NOS
     Dosage: UNK
  6. AMLODIPINE [Concomitant]
     Active Substance: AMLODIPINE BESYLATE
     Dosage: UNK
  7. ALPRAZOLAM. [Concomitant]
     Active Substance: ALPRAZOLAM
     Dosage: UNK
  8. DULOXETINE. [Concomitant]
     Active Substance: DULOXETINE
     Dosage: UNK
  9. PREDNISONE. [Concomitant]
     Active Substance: PREDNISONE
     Dosage: UNK
  10. ASPIRIN [ACETYLSALICYLIC ACID] [Concomitant]
     Active Substance: ASPIRIN
     Dosage: UNK
  11. VITAMIN D2 [Concomitant]
     Active Substance: ERGOCALCIFEROL
     Dosage: UNK
  12. TELMISARTAN. [Concomitant]
     Active Substance: TELMISARTAN
     Dosage: UNK
  13. MELOXICAM. [Concomitant]
     Active Substance: MELOXICAM
     Dosage: UNK
  14. XELJANZ [Suspect]
     Active Substance: TOFACITINIB CITRATE
     Indication: RHEUMATOID ARTHRITIS
     Dosage: 5 MG, 2X/DAY
     Route: 048
     Dates: start: 201912
  15. VITAMIN D3 [Concomitant]
     Active Substance: CHOLECALCIFEROL
     Dosage: UNK
  16. LANTUS [Concomitant]
     Active Substance: INSULIN GLARGINE
     Dosage: UNK

REACTIONS (25)
  - Poor peripheral circulation [Unknown]
  - Diabetes mellitus inadequate control [Unknown]
  - Limb injury [Unknown]
  - Therapeutic product effect incomplete [Unknown]
  - Influenza [Unknown]
  - Vitamin D decreased [Unknown]
  - Joint injury [Unknown]
  - Arthralgia [Unknown]
  - Sensitivity to weather change [Unknown]
  - Fall [Unknown]
  - Swelling [Unknown]
  - Somnambulism [Unknown]
  - Peripheral swelling [Unknown]
  - Gait disturbance [Unknown]
  - Impaired healing [Unknown]
  - Depression [Unknown]
  - Foot fracture [Unknown]
  - Patella fracture [Not Recovered/Not Resolved]
  - Product dose omission in error [Unknown]
  - Fatigue [Unknown]
  - Nodule [Unknown]
  - Joint ankylosis [Unknown]
  - Asthenia [Unknown]
  - Balance disorder [Unknown]
  - Localised infection [Unknown]
